FAERS Safety Report 5208368-3 (Version None)
Quarter: 2006Q4

REPORT INFORMATION
  Report Type: 
  Country: None (occurrence: None)
  Receive Date: 20061026
  Receipt Date: 20060927
  Transmission Date: 20070319
  Serious: No
  Sender: FDA-Public Use
  Company Number: 2006094583

PATIENT
  Age: 40 Year
  Sex: Female

DRUGS (3)
  1. LYRICA [Suspect]
     Indication: NECK PAIN
     Dosage: 75 MG (75 MG, 1 IN 1 D)
     Dates: start: 20060801
  2. NEURONTIN [Suspect]
  3. ALL OTHER THERAPEUTIC PRODUCTS (ALL OTHER THERAPEUTIC PRODUCTS) [Concomitant]

REACTIONS (3)
  - ABNORMAL DREAMS [None]
  - DRUG INEFFECTIVE [None]
  - FATIGUE [None]
